FAERS Safety Report 11157590 (Version 2)
Quarter: 2015Q3

REPORT INFORMATION
  Report Type: Report from Study
  Country: PT (occurrence: None)
  Receive Date: 20150601
  Receipt Date: 20150707
  Transmission Date: 20151125
  Serious: Yes (Hospitalization, Disabling, Other)
  Sender: FDA-Public Use
  Company Number: KAD201505-001409

PATIENT
  Age: 69 Year
  Sex: Male

DRUGS (6)
  1. DAFLON (CAPIVEN) (HESPERIDIN, DIOSMIN) (HESPERIDIN, DIOSMIN) [Concomitant]
  2. LEVOTHROXIN (LEVOTHYROXINE SODIUM) (LEVOTHYROXINE SODIUM) [Concomitant]
  3. ABT-450/RITONAVIR/ABT-267 (OMBITASVIR, PARITAPREVIR, RITONAVIR) [Suspect]
     Active Substance: OMBITASVIR\PARITAPREVIR\RITONAVIR
     Indication: HEPATITIS C
     Dosage: TABLET; 150/100/25 MG IN ONE DAY, 1 IN 1 D
     Dates: start: 20150305, end: 20150430
  4. RIBAVIRIN (RIBAVIRIN) [Suspect]
     Active Substance: RIBAVIRIN
     Indication: HEPATITIS C
     Dosage: TOTAL DAILY DOSE: 1200 MG, ORAL
     Route: 048
     Dates: start: 20150305, end: 20150430
  5. ABT-333 (DASABUVIR) [Suspect]
     Active Substance: DASABUVIR
     Indication: HEPATITIS C
     Dosage: 250 MG (500 MG, TWO IN ONE DAY)
     Dates: start: 20150305, end: 20150430
  6. TAMSULOSINE (TAMSULOSINE HYDROCHLORIDE) (TAMSULOSINE HYDROCHLORIDE) [Concomitant]

REACTIONS (5)
  - Encephalopathy [None]
  - Fall [None]
  - Injury [None]
  - Toxicity to various agents [None]
  - Hepatic failure [None]

NARRATIVE: CASE EVENT DATE: 20150430
